FAERS Safety Report 4518016-3 (Version None)
Quarter: 2004Q4

REPORT INFORMATION
  Report Type: 
  Country: None (occurrence: None)
  Receive Date: 20041130
  Receipt Date: 20041117
  Transmission Date: 20050328
  Serious: Yes (Other)
  Sender: FDA-Public Use
  Company Number: 2004097024

PATIENT
  Sex: Male
  Weight: 58.9676 kg

DRUGS (2)
  1. DILANTIN [Suspect]
     Indication: CONVULSION
     Dosage: ORAL
     Route: 048
     Dates: start: 19840101
  2. OXCARBAZEPINE (OXCARBAZEPINE) [Suspect]
     Indication: ILL-DEFINED DISORDER

REACTIONS (5)
  - ANTICONVULSANT DRUG LEVEL INCREASED [None]
  - CALCIUM DEFICIENCY [None]
  - CEREBRAL ATROPHY [None]
  - DRUG LEVEL DECREASED [None]
  - MUSCLE CRAMP [None]
